FAERS Safety Report 5483634-5 (Version None)
Quarter: 2007Q4

REPORT INFORMATION
  Report Type: 
  Country: None (occurrence: None)
  Receive Date: 20071010
  Receipt Date: 20071004
  Transmission Date: 20080405
  Serious: Yes (Other)
  Sender: FDA-Public Use
  Company Number: 2007331620

PATIENT
  Age: 62 Year
  Sex: Female

DRUGS (3)
  1. BENADRYL CREAM EXTRA STRENGTH (DIPHENHYDRAMINE, ZINC ACETATE) [Suspect]
     Indication: DERMATITIS CONTACT
     Dosage: 3 X A DAY, TOPICAL
     Route: 061
     Dates: start: 20070901
  2. BENADRYL CREAM EXTRA STRENGTH (DIPHENHYDRAMINE, ZINC ACETATE) [Suspect]
  3. PREDNISONE TAB [Suspect]
     Indication: DERMATITIS CONTACT
     Dosage: 40MG, ORAL
     Route: 048

REACTIONS (12)
  - CONDITION AGGRAVATED [None]
  - DERMATITIS CONTACT [None]
  - DRUG INEFFECTIVE [None]
  - EYE SWELLING [None]
  - INSOMNIA [None]
  - LIP PAIN [None]
  - PAIN [None]
  - PRURITUS [None]
  - RASH ERYTHEMATOUS [None]
  - SKIN BURNING SENSATION [None]
  - STOMATITIS [None]
  - THROAT TIGHTNESS [None]
